FAERS Safety Report 19756864 (Version 1)
Quarter: 2021Q3

REPORT INFORMATION
  Report Type: Spontaneous
  Country: DE (occurrence: DE)
  Receive Date: 20210827
  Receipt Date: 20210827
  Transmission Date: 20211014
  Serious: Yes (Life-Threatening, Other)
  Sender: FDA-Public Use
  Company Number: DE-MYLANLABS-2021M1056236

PATIENT
  Age: 45 Year
  Sex: Male

DRUGS (4)
  1. OXALIPLATIN. [Suspect]
     Active Substance: OXALIPLATIN
     Indication: ADENOCARCINOMA PANCREAS
     Dosage: 85 MILLIGRAM/SQ. METER
     Route: 065
     Dates: start: 201302, end: 201405
  2. IRINOTECAN [Suspect]
     Active Substance: IRINOTECAN
     Indication: ADENOCARCINOMA PANCREAS
     Dosage: 180 MILLIGRAM/SQ. METER
     Route: 065
     Dates: start: 201302, end: 201405
  3. FOLINIC ACID [Suspect]
     Active Substance: LEUCOVORIN
     Indication: ADENOCARCINOMA PANCREAS
     Dosage: 400 MILLIGRAM/SQ. METER
     Route: 065
     Dates: start: 201302, end: 201405
  4. FLUOROURACIL. [Suspect]
     Active Substance: FLUOROURACIL
     Indication: ADENOCARCINOMA PANCREAS
     Dosage: 400 MILLIGRAM/SQ. METER
     Route: 065
     Dates: start: 201302, end: 201405

REACTIONS (6)
  - Pneumonia [Recovered/Resolved]
  - Leukopenia [Unknown]
  - Deep vein thrombosis [Recovered/Resolved]
  - Therapeutic product effective for unapproved indication [Recovered/Resolved]
  - Pulmonary embolism [Recovered/Resolved]
  - Off label use [Recovered/Resolved]
